FAERS Safety Report 13872551 (Version 4)
Quarter: 2018Q4

REPORT INFORMATION
  Report Type: Report from Study
  Country: FR (occurrence: FR)
  Receive Date: 20170816
  Receipt Date: 20181114
  Transmission Date: 20190204
  Serious: Yes (Death, Hospitalization, Other)
  Sender: FDA-Public Use
  Company Number: FR-BRISTOL-MYERS SQUIBB COMPANY-BMS-2017-071483

PATIENT
  Age: 56 Year
  Sex: Male

DRUGS (15)
  1. OMEPRAZOLE. [Concomitant]
     Active Substance: OMEPRAZOLE
     Indication: PRODUCT USED FOR UNKNOWN INDICATION
     Dosage: 1 TAB, UNK(20)
     Route: 065
  2. CHLORPROMAZINE. [Concomitant]
     Active Substance: CHLORPROMAZINE
     Indication: HICCUPS
     Route: 065
  3. DIFFU K [Concomitant]
     Active Substance: POTASSIUM CHLORIDE
     Indication: PRODUCT USED FOR UNKNOWN INDICATION
     Dosage: 2 DF, BID
     Route: 065
  4. MORPHINE SULFATE. [Concomitant]
     Active Substance: MORPHINE SULFATE
     Indication: PRODUCT USED FOR UNKNOWN INDICATION
     Dosage: 10 MG, UNK
     Route: 048
  5. FUROSEMIDE. [Concomitant]
     Active Substance: FUROSEMIDE
     Indication: PRODUCT USED FOR UNKNOWN INDICATION
     Dosage: 1 TAB, QD
     Route: 065
  6. ONDANSETRON [Concomitant]
     Active Substance: ONDANSETRON
     Indication: NAUSEA
     Dosage: 1 DF, TID
     Route: 065
  7. KABIVEN [Concomitant]
     Active Substance: AMINO ACIDS\ANHYDROUS DEXTROSE\CALCIUM CHLORIDE\MAGNESIUM SULFATE HEPTAHYDRATE\POTASSIUM CHLORIDE\SODIUM ACETATE\SODIUM GLYCEROPHOSPHATE ANHYDROUS\SOYBEAN OIL
     Indication: PRODUCT USED FOR UNKNOWN INDICATION
     Route: 065
  8. PARACETAMOL [Concomitant]
     Active Substance: ACETAMINOPHEN
     Indication: PRODUCT USED FOR UNKNOWN INDICATION
     Dosage: 1 DF, QID
     Route: 065
  9. METHYLPREDNISOLONE. [Concomitant]
     Active Substance: METHYLPREDNISOLONE
     Indication: PRODUCT USED FOR UNKNOWN INDICATION
     Dosage: 120 MG, QD
     Route: 065
  10. NIVOLUMAB [Suspect]
     Active Substance: NIVOLUMAB
     Indication: LUNG NEOPLASM MALIGNANT
     Dosage: 174 MG, Q2WK
     Route: 042
     Dates: end: 20170713
  11. ACTISKENAN [Concomitant]
     Active Substance: MORPHINE SULFATE
     Indication: PRODUCT USED FOR UNKNOWN INDICATION
     Dosage: 10
     Route: 065
  12. DOLIPRANE [Concomitant]
     Active Substance: ACETAMINOPHEN
     Indication: PAIN
     Route: 065
  13. METOCLOPRAMIDE. [Concomitant]
     Active Substance: METOCLOPRAMIDE
     Indication: PRODUCT USED FOR UNKNOWN INDICATION
     Dosage: 1 DF, TID
     Route: 065
  14. VOGALENE [Concomitant]
     Active Substance: METOPIMAZINE
     Indication: PRODUCT USED FOR UNKNOWN INDICATION
     Dosage: 1 UNK, TID(SUPPOSITORY)
     Route: 065
  15. AMPHOTERICIN [Concomitant]
     Active Substance: AMPHOTERICIN B
     Indication: PRODUCT USED FOR UNKNOWN INDICATION
     Dosage: 1 DF, QID
     Route: 065

REACTIONS (6)
  - Thrombocytopenia [Not Recovered/Not Resolved]
  - Anaemia [Recovered/Resolved]
  - Bone marrow failure [Fatal]
  - Epistaxis [Recovered/Resolved]
  - Tumour associated fever [Not Recovered/Not Resolved]
  - General physical health deterioration [Fatal]

NARRATIVE: CASE EVENT DATE: 201706
